FAERS Safety Report 16644175 (Version 1)
Quarter: 2019Q3

REPORT INFORMATION
  Report Type: Spontaneous
  Country: CH (occurrence: CH)
  Receive Date: 20190729
  Receipt Date: 20190729
  Transmission Date: 20191004
  Serious: Yes (Hospitalization, Other)
  Sender: FDA-Public Use
  Company Number: CH-SA-2019SA200039

PATIENT
  Age: 58 Year
  Sex: Male

DRUGS (19)
  1. OXALIPLATIN. [Suspect]
     Active Substance: OXALIPLATIN
     Dosage: 170 MG
     Route: 041
     Dates: start: 20190702
  2. TIORFAN [Concomitant]
     Active Substance: RACECADOTRIL
     Dosage: UNK
  3. BICTEGRAVIR;EMTRICITABINE;TENOFOVIR [Suspect]
     Active Substance: BICTEGRAVIR\EMTRICITABINE\TENOFOVIR ALAFENAMIDE
     Dosage: 1 DF, QD
  4. PIPERACILLIN AND TAZOBACTAM [Concomitant]
     Active Substance: PIPERACILLIN SODIUM\TAZOBACTAM SODIUM
     Dosage: UNK
  5. VANCOMYCINE [VANCOMYCIN] [Concomitant]
     Active Substance: VANCOMYCIN
     Dosage: UNK
  6. TAXOTERE [Suspect]
     Active Substance: DOCETAXEL
     Dosage: 100 MG
     Dates: start: 20190702
  7. FLUCONAZOLE. [Concomitant]
     Active Substance: FLUCONAZOLE
     Dosage: UNK
  8. FILGRASTIM [Concomitant]
     Active Substance: FILGRASTIM
     Dosage: UNK
  9. PASPERTIN [METOCLOPRAMIDE;POLIDOCANOL] [Concomitant]
     Dosage: AS NECESSARY
  10. DAFALGAN [Concomitant]
     Active Substance: ACETAMINOPHEN
     Dosage: AS NECESSARY
  11. DARUNAVIR [Suspect]
     Active Substance: DARUNAVIR
     Dosage: 600 MG, QOD
     Route: 048
  12. RITONAVIR. [Suspect]
     Active Substance: RITONAVIR
     Dosage: 100 MG, QD
  13. IMODIUM [Concomitant]
     Active Substance: LOPERAMIDE HYDROCHLORIDE
     Dosage: AS NECESSARY
  14. FLUOROURACIL. [Suspect]
     Active Substance: FLUOROURACIL
     Dosage: 4000 MG
     Route: 041
     Dates: start: 20190702
  15. ASPIRIN CARDIO [Concomitant]
     Active Substance: ASPIRIN
     Dosage: UNK
  16. NEXIUM MUPS [ESOMEPRAZOLE MAGNESIUM] [Concomitant]
     Active Substance: ESOMEPRAZOLE MAGNESIUM
     Dosage: UNK
  17. MYCOSTATINE [Concomitant]
     Active Substance: NYSTATIN
     Dosage: UNK
  18. SCHERIPROCT [CINCHOCAINE HYDROCHLORIDE;PREDNISOLONE CAPROATE] [Concomitant]
     Dosage: UNK
  19. BUSCOPAN [Concomitant]
     Active Substance: BUTYLSCOPOLAMINE BROMIDE
     Dosage: AS NECESSARY

REACTIONS (6)
  - Abdominal distension [Not Recovered/Not Resolved]
  - Oral disorder [Not Recovered/Not Resolved]
  - Febrile neutropenia [Not Recovered/Not Resolved]
  - Odynophagia [Not Recovered/Not Resolved]
  - Drug interaction [Not Recovered/Not Resolved]
  - Diarrhoea [Not Recovered/Not Resolved]

NARRATIVE: CASE EVENT DATE: 20190703
